FAERS Safety Report 7235996-6 (Version None)
Quarter: 2011Q1

REPORT INFORMATION
  Report Type: 
  Country: None (occurrence: None)
  Receive Date: 20110120
  Receipt Date: 20110118
  Transmission Date: 20110831
  Serious: Yes (Hospitalization)
  Sender: FDA-Public Use
  Company Number: B0694935A

PATIENT
  Sex: Female

DRUGS (2)
  1. EFFERALGAN [Concomitant]
     Dates: start: 20101208, end: 20101208
  2. AUGMENTIN '125' [Suspect]
     Indication: TOOTHACHE
     Dosage: 1G PER DAY
     Route: 048
     Dates: start: 20101208, end: 20101211

REACTIONS (3)
  - LARYNGEAL OEDEMA [None]
  - DERMATITIS [None]
  - URTICARIA [None]
